FAERS Safety Report 9756373 (Version 1)
Quarter: 2013Q4

REPORT INFORMATION
  Report Type: Spontaneous
  Country: US (occurrence: US)
  Receive Date: 20131213
  Receipt Date: 20131213
  Transmission Date: 20140711
  Serious: No
  Sender: FDA-Public Use
  Company Number: US-GLAXOSMITHKLINE-A1039483A

PATIENT
  Age: 35 Year
  Sex: Female

DRUGS (1)
  1. WALGREENS NICOTINE TRANSDERMAL SYSTEM PATCH CLEAR, 21MG [Suspect]
     Indication: EX-TOBACCO USER
     Dates: start: 201307, end: 20130826

REACTIONS (3)
  - Ill-defined disorder [Not Recovered/Not Resolved]
  - Application site erythema [Not Recovered/Not Resolved]
  - Application site urticaria [Not Recovered/Not Resolved]
